FAERS Safety Report 14150863 (Version 3)
Quarter: 2018Q1

REPORT INFORMATION
  Report Type: Report from Study
  Country: GB (occurrence: GB)
  Receive Date: 20171102
  Receipt Date: 20180223
  Transmission Date: 20180508
  Serious: Yes (Life-Threatening, Hospitalization, Other)
  Sender: FDA-Public Use
  Company Number: GB-AMGEN-GBRSL2017077715

PATIENT
  Age: 90 Year
  Sex: Female

DRUGS (1)
  1. ARANESP [Suspect]
     Active Substance: DARBEPOETIN ALFA
     Indication: PRODUCT USED FOR UNKNOWN INDICATION
     Dosage: 30 MUG, UNK
     Route: 065

REACTIONS (7)
  - Back injury [Unknown]
  - Chemotherapy [Unknown]
  - Gait disturbance [Unknown]
  - Dyspnoea [Unknown]
  - Transfusion [Unknown]
  - Myocardial infarction [Unknown]
  - Fall [Unknown]

NARRATIVE: CASE EVENT DATE: 201801
